FAERS Safety Report 4128189 (Version 2)
Quarter: 2013Q2

REPORT INFORMATION
  Report Type: Spontaneous
  Country: US (occurrence: None)
  Receive Date: 20040213
  Receipt Date: 20120827
  Transmission Date: 20140414
  Serious: Yes (Life-Threatening, Hospitalization)
  Sender: FDA-Public Use
  Company Number: 350191

PATIENT
  Age: 60 Year
  Sex: Male

DRUGS (6)
  1. PEGASYS [Suspect]
     Indication: HEPATITIS C
     Dosage: SUBCUTANEOUS
     Route: 058
     Dates: start: 20120409
  2. COPEGUS [Suspect]
     Indication: HEPATITIS C
     Dosage: ORAL
     Route: 048
     Dates: start: 20030618
  3. KLONOPIN [Suspect]
     Dates: start: 20031002
  4. GLUCOVANCE (GLYBURIDE/METFORMIN) [Concomitant]
  5. HUMULIN (INSULIN HUMAN) [Concomitant]
  6. ANTACID (ANTACID NOS) [Concomitant]

REACTIONS (4)
  - OVERDOSE [None]
  - NO ADVERSE EVENT [None]
  - Drug dose omission [None]
  - Blood glucose increased [None]
